FAERS Safety Report 7311168-1 (Version None)
Quarter: 2011Q1

REPORT INFORMATION
  Report Type: 
  Country: None (occurrence: None)
  Receive Date: 20110224
  Receipt Date: 20110214
  Transmission Date: 20110831
  Serious: Yes (Other)
  Sender: FDA-Public Use
  Company Number: US-ROCHE-759432

PATIENT

DRUGS (4)
  1. PEGINTERFERON ALFA-2B [Suspect]
     Dosage: FOR 24 WEEKS
     Route: 065
  2. PEGINTERFERON ALFA-2A [Suspect]
     Dosage: GIVEN FOR 24 WEEKS
     Route: 065
  3. INTERFERON [Suspect]
     Dosage: 3 MILLION UNITS.
     Route: 058
  4. RIBAVIRIN [Suspect]
     Dosage: FOR 24 WEEKS.
     Route: 065

REACTIONS (26)
  - HEADACHE [None]
  - PAPILLITIS [None]
  - URINARY TRACT INFECTION [None]
  - OTITIS MEDIA [None]
  - NIGHT SWEATS [None]
  - DEPRESSION [None]
  - IRRITABILITY [None]
  - ABDOMINAL PAIN UPPER [None]
  - HYPERTHYROIDISM [None]
  - ALOPECIA [None]
  - RASH [None]
  - POLYMYALGIA RHEUMATICA [None]
  - WEIGHT DECREASED [None]
  - FATIGUE [None]
  - MYALGIA [None]
  - HYPOTHYROIDISM [None]
  - PANCREATITIS [None]
  - PYREXIA [None]
  - DECREASED APPETITE [None]
  - NEUTROPENIA [None]
  - NAUSEA [None]
  - INSOMNIA [None]
  - ANAEMIA [None]
  - DYSPEPSIA [None]
  - PRURITUS [None]
  - UPPER RESPIRATORY TRACT INFECTION [None]
